FAERS Safety Report 13908266 (Version 1)
Quarter: 2017Q3

REPORT INFORMATION
  Report Type: Spontaneous
  Country: US (occurrence: US)
  Receive Date: 20170825
  Receipt Date: 20170825
  Transmission Date: 20171127
  Serious: Yes (Hospitalization)
  Sender: FDA-Public Use
  Company Number: US-SENTYNL THERAPEUTICS, INC.  -2025114

PATIENT
  Age: 67 Year
  Sex: Male

DRUGS (1)
  1. LEVORPHANOL TARTRATE. [Suspect]
     Active Substance: LEVORPHANOL TARTRATE
     Indication: PAIN
     Route: 048
     Dates: start: 20170628

REACTIONS (4)
  - Delirium tremens [Unknown]
  - Fall [Unknown]
  - Unevaluable event [Unknown]
  - Pneumonia [Unknown]
